FAERS Safety Report 12960467 (Version 3)
Quarter: 2017Q2

REPORT INFORMATION
  Report Type: Spontaneous
  Country: US (occurrence: US)
  Receive Date: 20161121
  Receipt Date: 20170410
  Transmission Date: 20170830
  Serious: No
  Sender: FDA-Public Use
  Company Number: US-BIOMARINAP-US-2016-111880

PATIENT
  Age: 4 Year
  Sex: Male
  Weight: 44 kg

DRUGS (1)
  1. KUVAN [Suspect]
     Active Substance: SAPROPTERIN DIHYDROCHLORIDE
     Indication: PHENYLKETONURIA
     Dosage: 400 MG, QD
     Route: 048
     Dates: start: 201611

REACTIONS (3)
  - Nasal congestion [Unknown]
  - Abdominal pain upper [Recovered/Resolved]
  - Aggression [Unknown]

NARRATIVE: CASE EVENT DATE: 201611
